FAERS Safety Report 9808685 (Version 1)
Quarter: 2014Q1

REPORT INFORMATION
  Report Type: Spontaneous
  Country: DE (occurrence: DE)
  Receive Date: 20140110
  Receipt Date: 20140110
  Transmission Date: 20141002
  Serious: Yes (Other)
  Sender: FDA-Public Use
  Company Number: DE-BRISTOL-MYERS SQUIBB COMPANY-19974989

PATIENT
  Sex: Female

DRUGS (6)
  1. ABATACEPT SUBQ INJECTION 125MG/ML [Suspect]
     Indication: RHEUMATOID ARTHRITIS
     Dosage: INJECTION
     Route: 058
     Dates: start: 201202, end: 20131128
  2. CARVEDILOL [Concomitant]
  3. CLOPIDOGREL BISULFATE [Concomitant]
     Dosage: 1DF= 1 UNIT NOS.
  4. HYDROCHLOROTHIAZIDE [Concomitant]
  5. AMLOPIN [Concomitant]
     Dosage: IN THE MORNING AND EVENING
  6. PREDNISONE [Concomitant]

REACTIONS (2)
  - Surgery [Unknown]
  - Impaired healing [Unknown]
